FAERS Safety Report 8051097-1 (Version None)
Quarter: 2012Q1

REPORT INFORMATION
  Report Type: 
  Country: None (occurrence: None)
  Receive Date: 20120117
  Receipt Date: 20120112
  Transmission Date: 20120608
  Serious: Yes (Other)
  Sender: FDA-Public Use
  Company Number: PHHY2012CN002763

PATIENT
  Sex: Male

DRUGS (2)
  1. TASIGNA [Suspect]
     Indication: CHRONIC MYELOID LEUKAEMIA
     Dosage: 200-300 MG, ONCE DAY
     Route: 048
     Dates: start: 20110410
  2. TASIGNA [Suspect]
     Route: 048
     Dates: end: 20120110

REACTIONS (5)
  - ARTHRALGIA [None]
  - HEADACHE [None]
  - RASH [None]
  - SLEEP DISORDER [None]
  - QUALITY OF LIFE DECREASED [None]
